FAERS Safety Report 25509486 (Version 1)
Quarter: 2025Q3

REPORT INFORMATION
  Report Type: Spontaneous
  Country: US (occurrence: US)
  Receive Date: 20250703
  Receipt Date: 20250703
  Transmission Date: 20251021
  Serious: Yes (Hospitalization, Other)
  Sender: ALEMBIC
  Company Number: US-ALEMBIC PHARMACUETICALS LIMITED-2025SCAL000691

PATIENT

DRUGS (3)
  1. LITHIUM CARBONATE [Suspect]
     Active Substance: LITHIUM CARBONATE
     Indication: Bipolar I disorder
     Route: 065
  2. ARIPIPRAZOLE [Suspect]
     Active Substance: ARIPIPRAZOLE
     Indication: Bipolar I disorder
     Route: 065
  3. GLYCOPYRROLATE [Suspect]
     Active Substance: GLYCOPYRROLATE
     Indication: Salivary hypersecretion
     Route: 065

REACTIONS (6)
  - Salivary hypersecretion [Recovering/Resolving]
  - Dysphagia [Recovering/Resolving]
  - Drooling [Recovering/Resolving]
  - Mental status changes [Recovering/Resolving]
  - Acute respiratory failure [Recovering/Resolving]
  - Drug ineffective [Unknown]
